FAERS Safety Report 21958088 (Version 1)
Quarter: 2023Q1

REPORT INFORMATION
  Report Type: Spontaneous
  Country: US (occurrence: None)
  Receive Date: 20230203
  Receipt Date: 20230203
  Transmission Date: 20230417
  Serious: Yes (Other)
  Sender: FDA-Public Use
  Company Number: None

PATIENT
  Age: 68 Year
  Sex: Male

DRUGS (1)
  1. ABIRATERONE [Suspect]
     Active Substance: ABIRATERONE
     Dosage: 240 MG DAILY ORAL
     Route: 048

REACTIONS (10)
  - Fatigue [None]
  - Asthenia [None]
  - Fatigue [None]
  - Blood glucose increased [None]
  - Blood cholesterol increased [None]
  - Therapy interrupted [None]
  - Dyspnoea [None]
  - Cough [None]
  - Oedema peripheral [None]
  - Oedema peripheral [None]

NARRATIVE: CASE EVENT DATE: 20221101
